FAERS Safety Report 19200937 (Version 2)
Quarter: 2021Q2

REPORT INFORMATION
  Report Type: Spontaneous
  Country: FI (occurrence: FI)
  Receive Date: 20210430
  Receipt Date: 20210603
  Transmission Date: 20210717
  Serious: Yes (Other)
  Sender: FDA-Public Use
  Company Number: FI-VIFOR (INTERNATIONAL) INC.-VIT-2021-03179

PATIENT
  Age: 67 Year
  Sex: Male

DRUGS (1)
  1. MIRCERA [Suspect]
     Active Substance: METHOXY POLYETHYLENE GLYCOL-EPOETIN BETA
     Indication: ANAEMIA
     Route: 065

REACTIONS (2)
  - Wrong technique in product usage process [Unknown]
  - Organ transplant [Unknown]
